FAERS Safety Report 4922029-7 (Version None)
Quarter: 2006Q1

REPORT INFORMATION
  Report Type: 
  Country: None (occurrence: None)
  Receive Date: 20060223
  Receipt Date: 20060223
  Transmission Date: 20060701
  Serious: Yes (Hospitalization)
  Sender: FDA-Public Use
  Company Number: None

PATIENT
  Age: 41 Year
  Sex: Male
  Weight: 91.6266 kg

DRUGS (13)
  1. WARFARIN SODIUM [Suspect]
     Indication: DEEP VEIN THROMBOSIS
     Dosage: 10 MG ALT 12.5 MG DAILY
  2. PREDNISONE [Concomitant]
  3. FOLIC ACID [Concomitant]
  4. METHOTREXATE [Concomitant]
  5. ACIPHEX [Concomitant]
  6. ATENOLOL [Concomitant]
  7. VIT K [Concomitant]
  8. OXYCODONE ER [Concomitant]
  9. FOSAMOX [Concomitant]
  10. CALCIUM CARBONATE [Concomitant]
  11. TEMOVATE [Concomitant]
  12. ELIDEL [Concomitant]
  13. CLOBESTROL [Concomitant]

REACTIONS (4)
  - DRUG EFFECT INCREASED [None]
  - HAEMATURIA [None]
  - HYPOCOAGULABLE STATE [None]
  - INTERNATIONAL NORMALISED RATIO INCREASED [None]
